FAERS Safety Report 22231923 (Version 1)
Quarter: 2023Q2

REPORT INFORMATION
  Report Type: Spontaneous
  Country: FR (occurrence: FR)
  Receive Date: 20230420
  Receipt Date: 20230420
  Transmission Date: 20230721
  Serious: Yes (Hospitalization)
  Sender: FDA-Public Use
  Company Number: None

PATIENT
  Age: 75 Year
  Sex: Male
  Weight: 68 kg

DRUGS (14)
  1. RITUXIMAB [Suspect]
     Active Substance: RITUXIMAB
     Indication: Chronic lymphocytic leukaemia
     Dosage: CURE 5
     Route: 041
     Dates: start: 20230331
  2. RITUXIMAB [Suspect]
     Active Substance: RITUXIMAB
     Dosage: CURE 1
     Route: 041
     Dates: start: 20221103
  3. RITUXIMAB [Suspect]
     Active Substance: RITUXIMAB
     Dosage: CURE 2
     Route: 041
     Dates: start: 20221202
  4. RITUXIMAB [Suspect]
     Active Substance: RITUXIMAB
     Dosage: CURE 3
     Route: 041
     Dates: start: 20230105
  5. RITUXIMAB [Suspect]
     Active Substance: RITUXIMAB
     Dosage: CURE 4
     Route: 041
     Dates: start: 20230203
  6. VENETOCLAX [Suspect]
     Active Substance: VENETOCLAX
     Indication: Chronic lymphocytic leukaemia
     Dosage: AUGMENTATION PROGRESSIVE
     Route: 065
     Dates: start: 20220919, end: 20230203
  7. MIDODRINE HYDROCHLORIDE [Concomitant]
     Active Substance: MIDODRINE HYDROCHLORIDE
  8. PRAVASTATIN SODIUM [Concomitant]
     Active Substance: PRAVASTATIN SODIUM
  9. KARDEGIC [Concomitant]
     Active Substance: ASPIRIN DL-LYSINE
     Dosage: POWDER FOR ORAL SOLUTION IN SACHET-DOSE
  10. EUPANTOL [Concomitant]
     Active Substance: PANTOPRAZOLE SODIUM
  11. LEVOTHYROXINE [Concomitant]
     Active Substance: LEVOTHYROXINE
  12. TRAMADOL HYDROCHLORIDE [Concomitant]
     Active Substance: TRAMADOL HYDROCHLORIDE
  13. VALACYCLOVIR HYDROCHLORIDE [Concomitant]
     Active Substance: VALACYCLOVIR HYDROCHLORIDE
  14. ALLOPURINOL [Concomitant]
     Active Substance: ALLOPURINOL

REACTIONS (1)
  - Cholecystitis acute [Recovering/Resolving]

NARRATIVE: CASE EVENT DATE: 20230305
